FAERS Safety Report 18557387 (Version 1)
Quarter: 2020Q4

REPORT INFORMATION
  Report Type: Other
  Country: US (occurrence: US)
  Receive Date: 20201129
  Receipt Date: 20201129
  Transmission Date: 20210114
  Serious: Yes (Life-Threatening, Hospitalization, Other)
  Sender: FDA-Public Use
  Company Number: US-C B FLEET CO INC-202011-US-004159

PATIENT
  Age: 77 Year
  Sex: Male

DRUGS (1)
  1. ASPIRIN. [Suspect]
     Active Substance: ASPIRIN
     Indication: ATRIAL FIBRILLATION
     Dosage: DOSAGE UNKNOWN
     Route: 065

REACTIONS (7)
  - Escherichia sepsis [Recovered/Resolved]
  - Urinary tract infection [Recovered/Resolved]
  - Pyelonephritis [Recovered/Resolved]
  - Hypovolaemic shock [Recovered/Resolved]
  - Renal haematoma [Recovered/Resolved]
  - Acute kidney injury [Recovered/Resolved]
  - Platelet dysfunction [Recovered/Resolved]
